FAERS Safety Report 6954677-7 (Version None)
Quarter: 2010Q3

REPORT INFORMATION
  Report Type: 
  Country: None (occurrence: None)
  Receive Date: 20100829
  Receipt Date: 20100726
  Transmission Date: 20110219
  Serious: No
  Sender: FDA-Public Use
  Company Number: US-ABBOTT-10P-163-0659933-00

PATIENT
  Sex: Male
  Weight: 72.64 kg

DRUGS (7)
  1. NIASPAN [Suspect]
     Indication: BLOOD CHOLESTEROL INCREASED
     Dates: start: 20100401, end: 20100601
  2. LOVOXYL [Concomitant]
     Indication: THYROID DISORDER
  3. ACTOS [Concomitant]
     Indication: PRODUCT USED FOR UNKNOWN INDICATION
  4. METFORMIN [Concomitant]
     Indication: DIABETES MELLITUS
  5. CINNAMON OTC [Concomitant]
     Indication: PRODUCT USED FOR UNKNOWN INDICATION
  6. CHROMIUM OTC [Concomitant]
     Indication: PRODUCT USED FOR UNKNOWN INDICATION
  7. ASPIRIN [Concomitant]
     Indication: PRODUCT USED FOR UNKNOWN INDICATION

REACTIONS (2)
  - FLUSHING [None]
  - PARAESTHESIA [None]
